FAERS Safety Report 7011536-1 (Version None)
Quarter: 2010Q3

REPORT INFORMATION
  Report Type: 
  Country: None (occurrence: None)
  Receive Date: 20100923
  Receipt Date: 20090129
  Transmission Date: 20110219
  Serious: No
  Sender: FDA-Public Use
  Company Number: US-WYE-H07973409

PATIENT
  Sex: Female
  Weight: 65.83 kg

DRUGS (4)
  1. PREMARIN [Suspect]
     Indication: VULVOVAGINAL DRYNESS
     Dosage: 0.625 MG TWICE WEEKLY
     Route: 067
     Dates: start: 20081231
  2. PREMARIN [Suspect]
     Dosage: 0.625 MG WEEKLY
     Route: 067
  3. KLONOPIN [Concomitant]
  4. DEPAKOTE [Concomitant]

REACTIONS (2)
  - BLOOD CREATININE INCREASED [None]
  - BLOOD UREA INCREASED [None]
